FAERS Safety Report 9795524 (Version 2)
Quarter: 2014Q1

REPORT INFORMATION
  Report Type: Other
  Country: US (occurrence: US)
  Receive Date: 20140103
  Receipt Date: 20140213
  Transmission Date: 20141002
  Serious: Yes (Hospitalization)
  Sender: FDA-Public Use
  Company Number: US-LUPIN PHARMACEUTICALS INC.-2013-01991

PATIENT
  Age: 69 Year
  Sex: Male
  Weight: 105.5 kg

DRUGS (10)
  1. LISINOPRIL [Suspect]
     Indication: HYPERTENSION
     Dosage: 10MG IN AM AND 20MG IN PM
     Route: 048
     Dates: start: 2006
  2. LISINOPRIL [Suspect]
     Dosage: 12-15 DOSAGE FORMS
     Route: 048
     Dates: start: 20131107, end: 20131107
  3. GLUCOPHAGE [Suspect]
     Indication: DIABETES MELLITUS
     Route: 048
     Dates: start: 2006
  4. GLUCOPHAGE [Suspect]
     Dosage: ROUGHLY 10 TABLETS
     Route: 048
     Dates: start: 20131107, end: 20131107
  5. ASA [Suspect]
     Indication: PROPHYLAXIS
     Route: 048
     Dates: start: 2012
  6. ASA [Suspect]
     Dosage: SEVERAL DOSAGE FORMS
     Route: 048
     Dates: start: 20131107, end: 20131107
  7. NAPROXEN [Suspect]
     Indication: PRODUCT USED FOR UNKNOWN INDICATION
     Route: 065
  8. NAPROXEN [Suspect]
     Dosage: 10-20 DOSAGE FORMS
     Route: 065
     Dates: start: 20131107, end: 20131107
  9. HYDROCHLOROTHIAZIDE [Concomitant]
     Indication: HYPERTENSION
     Route: 048
     Dates: start: 2006
  10. LORATADINE [Concomitant]
     Indication: FOOD ALLERGY
     Route: 048
     Dates: start: 1985

REACTIONS (5)
  - Suicide attempt [Recovered/Resolved]
  - Major depression [Recovering/Resolving]
  - Overdose [Recovered/Resolved]
  - Renal failure acute [Recovered/Resolved]
  - Hyponatraemia [Recovered/Resolved]
